FAERS Safety Report 13410271 (Version 2)
Quarter: 2017Q2

REPORT INFORMATION
  Report Type: Spontaneous
  Country: ES (occurrence: ES)
  Receive Date: 20170406
  Receipt Date: 20170418
  Transmission Date: 20170830
  Serious: Yes (Other)
  Sender: FDA-Public Use
  Company Number: ES-009507513-1704ESP000754

PATIENT
  Age: 19 Year
  Sex: Male

DRUGS (1)
  1. NASONEX [Suspect]
     Active Substance: MOMETASONE FUROATE
     Indication: OTOSALPINGITIS
     Dosage: 2 PULVERIZATIONS IN EACH NOSTRIL AT NIGHT
     Route: 001
     Dates: start: 20161010, end: 20161018

REACTIONS (3)
  - Ear infection fungal [Recovered/Resolved]
  - Incorrect route of drug administration [Recovered/Resolved]
  - Drug ineffective [Unknown]

NARRATIVE: CASE EVENT DATE: 20161010
